FAERS Safety Report 24282200 (Version 1)
Quarter: 2024Q3

REPORT INFORMATION
  Report Type: Spontaneous
  Country: JP (occurrence: JP)
  Receive Date: 20240904
  Receipt Date: 20240904
  Transmission Date: 20241016
  Serious: Yes (Other)
  Sender: ELI LILLY AND CO
  Company Number: JP-Merck Healthcare KGaA-2024045991

PATIENT
  Age: 60 Year
  Sex: Female

DRUGS (4)
  1. ERBITUX [Suspect]
     Active Substance: CETUXIMAB
     Indication: Hypopharyngeal cancer stage IV
     Dosage: 400 MG/M2, UNK
     Route: 041
  2. ERBITUX [Suspect]
     Active Substance: CETUXIMAB
     Dosage: 250 MG/M2, UNK
     Route: 041
  3. PACLITAXEL [Concomitant]
     Active Substance: PACLITAXEL
     Indication: Hypopharyngeal cancer stage IV
     Dosage: 100 MG/M2, UNKNOWN
     Route: 065
  4. CARBOPLATIN [Concomitant]
     Active Substance: CARBOPLATIN
     Indication: Hypopharyngeal cancer stage IV
     Dosage: UNK
     Route: 065

REACTIONS (1)
  - Neutrophil count decreased [Unknown]
